FAERS Safety Report 21049192 (Version 1)
Quarter: 2022Q3

REPORT INFORMATION
  Report Type: Spontaneous
  Country: US (occurrence: None)
  Receive Date: 20220706
  Receipt Date: 20220706
  Transmission Date: 20221026
  Serious: Yes (Life-Threatening, Other)
  Sender: FDA-Public Use
  Company Number: None

PATIENT
  Age: 27 Year
  Sex: Female

DRUGS (2)
  1. BEBTELOVIMAB [Suspect]
     Active Substance: BEBTELOVIMAB
  2. Bebteloviamab [Concomitant]
     Dates: start: 20220624, end: 20220624

REACTIONS (11)
  - Exposure during pregnancy [None]
  - Maternal drugs affecting foetus [None]
  - Emotional distress [None]
  - Crying [None]
  - Conversion disorder [None]
  - Dyspnoea [None]
  - Flushing [None]
  - Abdominal pain upper [None]
  - Foetal heart rate deceleration abnormality [None]
  - Foetal cardiac arrest [None]
  - Infusion related reaction [None]

NARRATIVE: CASE EVENT DATE: 20220624
